FAERS Safety Report 25526207 (Version 1)
Quarter: 2025Q3

REPORT INFORMATION
  Report Type: Spontaneous
  Country: EU (occurrence: EU)
  Receive Date: 20250707
  Receipt Date: 20250707
  Transmission Date: 20251020
  Serious: Yes (Life-Threatening, Other)
  Sender: VIIV
  Company Number: None

PATIENT
  Sex: Male
  Weight: 2.8 kg

DRUGS (2)
  1. TRIUMEQ [Suspect]
     Active Substance: ABACAVIR SULFATE\DOLUTEGRAVIR SODIUM\LAMIVUDINE
     Indication: HIV infection
     Dosage: 1 DF, QD
  2. BACTRIM [Suspect]
     Active Substance: SULFAMETHOXAZOLE\TRIMETHOPRIM
     Indication: Pneumocystis jirovecii pneumonia
     Dosage: 1 DF, QD

REACTIONS (7)
  - Neonatal cholestasis [Recovering/Resolving]
  - Thrombocytopenia [Recovering/Resolving]
  - Hyperlactacidaemia [Recovering/Resolving]
  - Blood creatine phosphokinase increased [Recovering/Resolving]
  - Anaemia [Recovering/Resolving]
  - Foetal exposure during pregnancy [Unknown]
  - Foetal growth restriction [Recovered/Resolved]

NARRATIVE: CASE EVENT DATE: 20250612
